FAERS Safety Report 4690906-0 (Version None)
Quarter: 2005Q2

REPORT INFORMATION
  Report Type: 
  Country: None (occurrence: None)
  Receive Date: 20050610
  Receipt Date: 20050523
  Transmission Date: 20051028
  Serious: Yes (Hospitalization)
  Sender: FDA-Public Use
  Company Number: B0382920A

PATIENT
  Age: 68 Year
  Sex: Male

DRUGS (7)
  1. DIGOXIN [Suspect]
     Indication: DRUG USE FOR UNKNOWN INDICATION
  2. NITROGLYCERIN [Concomitant]
  3. POTASSIUM SALT [Concomitant]
  4. XANTHINOL NICOTINATE [Concomitant]
  5. GENTAMICIN SULFATE [Concomitant]
  6. DOXYCYCLINE [Concomitant]
  7. DIPYRONE [Concomitant]

REACTIONS (17)
  - ARRHYTHMIA [None]
  - CACHEXIA [None]
  - CARDIAC FAILURE [None]
  - CARDIOMYOPATHY [None]
  - CORONARY ARTERY ATHEROSCLEROSIS [None]
  - DISORIENTATION [None]
  - ELECTROCARDIOGRAM CHANGE [None]
  - GENERAL PHYSICAL HEALTH DETERIORATION [None]
  - MUSCLE ATROPHY [None]
  - NERVOUS SYSTEM DISORDER [None]
  - OSTEITIS [None]
  - PSYCHOMOTOR RETARDATION [None]
  - PURULENCE [None]
  - RENAL FAILURE [None]
  - SPEECH DISORDER [None]
  - THERAPEUTIC AGENT TOXICITY [None]
  - URINARY TRACT INFECTION [None]
